FAERS Safety Report 7643374-0 (Version None)
Quarter: 2011Q3

REPORT INFORMATION
  Report Type: 
  Country: None (occurrence: None)
  Receive Date: 20110729
  Receipt Date: 20110721
  Transmission Date: 20111222
  Serious: Yes (Death)
  Sender: FDA-Public Use
  Company Number: US-CELGENEUS-087-50794-11072522

PATIENT

DRUGS (1)
  1. VIDAZA [Suspect]
     Dosage: 75 MICROGRAM/SQ. METER
     Route: 058
     Dates: start: 20110401

REACTIONS (1)
  - PNEUMONIA [None]
